FAERS Safety Report 24450804 (Version 5)
Quarter: 2025Q1

REPORT INFORMATION
  Report Type: Report from Study
  Country: FR (occurrence: FR)
  Receive Date: 20241017
  Receipt Date: 20250106
  Transmission Date: 20250408
  Serious: Yes (Death)
  Sender: PFIZER
  Company Number: FR-PFIZER INC-PV202400133113

PATIENT
  Age: 52 Year
  Sex: Male
  Weight: 70 kg

DRUGS (14)
  1. ELRANATAMAB [Suspect]
     Active Substance: ELRANATAMAB
     Indication: Plasma cell myeloma
     Route: 058
     Dates: start: 20231227, end: 20231227
  2. ELRANATAMAB [Suspect]
     Active Substance: ELRANATAMAB
     Route: 058
     Dates: start: 20231230, end: 20231230
  3. ELRANATAMAB [Suspect]
     Active Substance: ELRANATAMAB
     Route: 058
     Dates: start: 20240103, end: 20240103
  4. ELRANATAMAB [Suspect]
     Active Substance: ELRANATAMAB
     Dosage: WEEK 3: 76 MG ONCE A WEEK
     Route: 058
     Dates: start: 20240110, end: 20240125
  5. TOCILIZUMAB [Concomitant]
     Active Substance: TOCILIZUMAB
     Route: 042
     Dates: start: 20240101, end: 20240101
  6. AMOXICILLIN [Concomitant]
     Active Substance: AMOXICILLIN
     Dosage: 500 MG, 1X/DAY
     Route: 048
     Dates: start: 20231227, end: 20240131
  7. BACTRIM [Concomitant]
     Active Substance: SULFAMETHOXAZOLE\TRIMETHOPRIM
     Route: 048
     Dates: start: 20231227, end: 20240131
  8. VALACYCLOVIR HYDROCHLORIDE [Concomitant]
     Active Substance: VALACYCLOVIR HYDROCHLORIDE
     Dosage: 500 MG, 2X/DAY
     Route: 048
     Dates: start: 20231227, end: 20240131
  9. LEUCOVORIN CALCIUM [Concomitant]
     Active Substance: LEUCOVORIN CALCIUM
     Dosage: 25 MG, WEEKLY
     Route: 048
     Dates: start: 20231227, end: 20240131
  10. PIPERACILLIN SODIUM\TAZOBACTAM SODIUM [Concomitant]
     Active Substance: PIPERACILLIN SODIUM\TAZOBACTAM SODIUM
     Route: 042
     Dates: start: 20240101, end: 20240105
  11. CEFTRIAXONE SODIUM [Concomitant]
     Active Substance: CEFTRIAXONE SODIUM
     Dosage: 2000 MG, 1X/DAY
     Dates: start: 20240101, end: 20240105
  12. OXYGEN [Concomitant]
     Active Substance: OXYGEN
     Indication: Oxygen saturation decreased
     Route: 045
     Dates: start: 20240130, end: 20240131
  13. MORPHINE [Concomitant]
     Active Substance: MORPHINE
     Indication: Tachypnoea
     Route: 042
     Dates: start: 20240130, end: 20240131
  14. MIDAZOLAM [Concomitant]
     Active Substance: MIDAZOLAM
     Indication: Agitation
     Route: 042
     Dates: start: 20240130, end: 20240131

REACTIONS (2)
  - Lung disorder [Fatal]
  - Influenza [Fatal]

NARRATIVE: CASE EVENT DATE: 20240128
